FAERS Safety Report 10687390 (Version 2)
Quarter: 2015Q1

REPORT INFORMATION
  Report Type: Spontaneous
  Country: AR (occurrence: None)
  Receive Date: 20141230
  Receipt Date: 20150212
  Transmission Date: 20150720
  Serious: Yes (Congenital Anomaly)
  Sender: FDA-Public Use
  Company Number: 2014HINOTH1083

PATIENT
  Age: 39 Week
  Sex: Male
  Weight: 3.1 kg

DRUGS (3)
  1. LOPINAVIR+RITONAVIR (KALETRA, ALUVIA, LPV/R) (LOPINAVIR+RITONAVIR (KALETRA, ALUVIA, LPV/R)) TABLET [Concomitant]
  2. LAMIVUDINE (LAMIVUDINE) UNKNOWN [Suspect]
     Active Substance: LAMIVUDINE
     Indication: HIV INFECTION
     Route: 064
  3. EFAVIRENZ (EFAVIRENZ) UNKNOWN [Suspect]
     Active Substance: EFAVIRENZ
     Indication: HIV INFECTION
     Route: 064

REACTIONS (2)
  - Plagiocephaly [None]
  - Maternal drugs affecting foetus [None]
